FAERS Safety Report 17190391 (Version 2)
Quarter: 2021Q4

REPORT INFORMATION
  Report Type: Other
  Country: JP (occurrence: None)
  Receive Date: 20191223
  Receipt Date: 20211216
  Transmission Date: 20220303
  Serious: Yes (Hospitalization, Other)
  Sender: FDA-Public Use
  Company Number: JP-ROCHE-2469310

PATIENT
  Age: 77 Year
  Sex: Male
  Weight: 57 kg

DRUGS (15)
  1. RITUXIMAB [Suspect]
     Active Substance: RITUXIMAB
     Indication: Follicular lymphoma
     Route: 041
  2. OBINUTUZUMAB [Suspect]
     Active Substance: OBINUTUZUMAB
     Indication: Follicular lymphoma
     Dosage: THE PATIENT RECEIVED 1000 MG DOSE OF INTRAVENOUS OBINUTUZUMAB ON DATES: 03/APR/2019, 10/APR/2019, 25
     Route: 042
     Dates: start: 20190327
  3. CYCLOPHOSPHAMIDE [Concomitant]
     Active Substance: CYCLOPHOSPHAMIDE
     Indication: Follicular lymphoma
     Route: 042
  4. DOXORUBICIN HYDROCHLORIDE [Concomitant]
     Active Substance: DOXORUBICIN HYDROCHLORIDE
     Indication: Follicular lymphoma
     Route: 042
  5. VINCRISTINE SULFATE [Concomitant]
     Active Substance: VINCRISTINE SULFATE
     Indication: Follicular lymphoma
     Route: 042
  6. PREDNISOLONE [Concomitant]
     Active Substance: PREDNISOLONE
     Indication: Follicular lymphoma
     Route: 048
     Dates: start: 20200109, end: 20200928
  7. BENDAMUSTINE HYDROCHLORIDE [Concomitant]
     Active Substance: BENDAMUSTINE HYDROCHLORIDE
     Indication: Follicular lymphoma
     Route: 042
     Dates: start: 20190328, end: 20190823
  8. BENDAMUSTINE HYDROCHLORIDE [Concomitant]
     Active Substance: BENDAMUSTINE HYDROCHLORIDE
     Route: 042
     Dates: start: 20200106, end: 20200106
  9. CEFTRIAXONE SODIUM [Concomitant]
     Active Substance: CEFTRIAXONE SODIUM
  10. AZITHROMYCIN [Concomitant]
     Active Substance: AZITHROMYCIN
  11. SULFAMETHOXAZOLE\TRIMETHOPRIM [Concomitant]
     Active Substance: SULFAMETHOXAZOLE\TRIMETHOPRIM
  12. VORICONAZOLE [Concomitant]
     Active Substance: VORICONAZOLE
  13. MEROPENEM [Concomitant]
     Active Substance: MEROPENEM
     Dates: start: 20200107, end: 20200109
  14. LEVOFLOXACIN HEMIHYDRATE [Concomitant]
     Active Substance: LEVOFLOXACIN
     Dates: start: 20200107, end: 20200120
  15. GANCICLOVIR [Concomitant]
     Active Substance: GANCICLOVIR

REACTIONS (2)
  - Myelosuppression [Unknown]
  - Pneumonia [Recovered/Resolved]

NARRATIVE: CASE EVENT DATE: 20191219
